FAERS Safety Report 5496135-5 (Version None)
Quarter: 2007Q4

REPORT INFORMATION
  Report Type: 
  Country: None (occurrence: None)
  Receive Date: 20071023
  Receipt Date: 20071023
  Transmission Date: 20080405
  Serious: Yes (Other)
  Sender: FDA-Public Use
  Company Number: None

PATIENT
  Age: 30 Year
  Sex: Female
  Weight: 61.2356 kg

DRUGS (1)
  1. MIRENA [Suspect]
     Indication: CONTRACEPTION
     Dosage: DAILY, INTRA-UTERI
     Route: 015
     Dates: start: 20061204, end: 20071023

REACTIONS (14)
  - ABDOMINAL PAIN LOWER [None]
  - ACNE [None]
  - BREAST TENDERNESS [None]
  - CONDITION AGGRAVATED [None]
  - DIZZINESS [None]
  - HEADACHE [None]
  - MENORRHAGIA [None]
  - METRORRHAGIA [None]
  - MOOD SWINGS [None]
  - MUSCLE SPASMS [None]
  - NAUSEA [None]
  - THROMBOSIS [None]
  - UNEVALUABLE EVENT [None]
  - WEIGHT INCREASED [None]
